FAERS Safety Report 4482094-0 (Version None)
Quarter: 2004Q3

REPORT INFORMATION
  Report Type: 
  Country: None (occurrence: None)
  Receive Date: 20040921
  Receipt Date: 20030923
  Transmission Date: 20050211
  Serious: Yes (Hospitalization)
  Sender: FDA-Public Use
  Company Number: 163-20785-03070141(1)

PATIENT
  Age: 60 Year
  Sex: Male

DRUGS (4)
  1. THALOMID [Suspect]
     Indication: MULTIPLE MYELOMA
     Dosage: 100 - 200 MG, DAILY, ORAL
     Route: 048
     Dates: start: 20020501
  2. THALOMID [Suspect]
     Indication: MULTIPLE MYELOMA
     Dosage: 100 - 200 MG, DAILY, ORAL
     Route: 048
     Dates: start: 20021201
  3. DEXAMETHASONE [Concomitant]
  4. DECADRON [Concomitant]

REACTIONS (3)
  - DISEASE PROGRESSION [None]
  - PNEUMONIA [None]
  - VASCULITIC RASH [None]
